FAERS Safety Report 13024007 (Version 2)
Quarter: 2016Q4

REPORT INFORMATION
  Report Type: Spontaneous
  Country: US (occurrence: US)
  Receive Date: 20161213
  Receipt Date: 20161219
  Transmission Date: 20170207
  Serious: Yes (Other)
  Sender: FDA-Public Use
  Company Number: US-PFIZER INC-2016574715

PATIENT
  Sex: Female

DRUGS (1)
  1. LYRICA [Suspect]
     Active Substance: PREGABALIN
     Indication: PAIN
     Dosage: 300 MG, DAILY

REACTIONS (5)
  - Seizure [Unknown]
  - Emotional distress [Unknown]
  - Confusional state [Unknown]
  - Dizziness [Unknown]
  - Weight increased [Unknown]
